FAERS Safety Report 15305489 (Version 2)
Quarter: 2020Q4

REPORT INFORMATION
  Report Type: Spontaneous
  Country: FR (occurrence: FR)
  Receive Date: 20180822
  Receipt Date: 20201020
  Transmission Date: 20210113
  Serious: Yes (Other)
  Sender: FDA-Public Use
  Company Number: FR-SUN PHARMACEUTICAL INDUSTRIES LTD-2018RR-182175

PATIENT
  Age: 52 Year
  Sex: Male

DRUGS (9)
  1. PRIMPERAN [Suspect]
     Active Substance: METOCLOPRAMIDE HYDROCHLORIDE
     Indication: NAUSEA
     Dosage: NON RENSEIGNEE ()
     Route: 048
  2. ZOPHREN [Suspect]
     Active Substance: ONDANSETRON
     Indication: HODGKIN^S DISEASE
     Dosage: NON RENSEIGNEE ()
     Route: 042
     Dates: start: 20180705, end: 20180705
  3. PRIMPERAN [Suspect]
     Active Substance: METOCLOPRAMIDE HYDROCHLORIDE
     Route: 048
  4. VINORELBINE BASE [Suspect]
     Active Substance: VINORELBINE TARTRATE
     Indication: HODGKIN^S DISEASE
     Dosage: NON RENSEIGNEE ()
     Route: 042
     Dates: start: 20180705, end: 20180705
  5. ZELITREX [Suspect]
     Active Substance: VALACYCLOVIR HYDROCHLORIDE
     Indication: HODGKIN^S DISEASE
     Dosage: UNK
     Route: 048
     Dates: start: 20180705
  6. BACTRIM [Suspect]
     Active Substance: SULFAMETHOXAZOLE\TRIMETHOPRIM
     Indication: HODGKIN^S DISEASE
     Dosage: UNK
     Route: 048
     Dates: start: 20180705, end: 20180705
  7. CAELYX [Suspect]
     Active Substance: DOXORUBICIN HYDROCHLORIDE
     Indication: HODGKIN^S DISEASE
     Dosage: NON RENSEIGNEE ()
     Route: 042
     Dates: start: 20180705, end: 20180705
  8. GEMCITABINE. [Suspect]
     Active Substance: GEMCITABINE
     Indication: HODGKIN^S DISEASE
     Dosage: NON RENSEIGNEE ()
     Route: 042
     Dates: start: 20180705, end: 20180705
  9. LEDERFOLINE [Suspect]
     Active Substance: LEUCOVORIN CALCIUM
     Indication: HAEMATOTOXICITY
     Dosage: NON RENSEIGNEE ()
     Route: 048
     Dates: start: 20180705, end: 20180705

REACTIONS (2)
  - Acute generalised exanthematous pustulosis [Recovered/Resolved]
  - Off label use [Recovered/Resolved]

NARRATIVE: CASE EVENT DATE: 20180705
